FAERS Safety Report 26137416 (Version 1)
Quarter: 2025Q4

REPORT INFORMATION
  Report Type: Spontaneous
  Country: US (occurrence: US)
  Receive Date: 20251209
  Receipt Date: 20251209
  Transmission Date: 20260117
  Serious: No
  Sender: PURDUE
  Company Number: US-PURDUE PHARMA-USA-2025-0322787

PATIENT

DRUGS (3)
  1. OXYCONTIN [Suspect]
     Active Substance: OXYCODONE HYDROCHLORIDE
     Indication: Pain
     Dosage: UNK
     Route: 048
  2. FENTANYL [Suspect]
     Active Substance: FENTANYL
     Indication: Pain
     Dosage: UNK (EVERY TWO WEEKS, STARTED WITH 100)
     Route: 065
  3. FENTANYL [Suspect]
     Active Substance: FENTANYL
     Dosage: UNK (ANOTHER TWO WEEK 95)
     Route: 065

REACTIONS (1)
  - Drug withdrawal syndrome [Unknown]
